FAERS Safety Report 4595040-6 (Version None)
Quarter: 2005Q1

REPORT INFORMATION
  Report Type: 
  Country: None (occurrence: None)
  Receive Date: 20050223
  Receipt Date: 20050209
  Transmission Date: 20050727
  Serious: No
  Sender: FDA-Public Use
  Company Number: 2005-125106-NL

PATIENT
  Age: 18 Year
  Sex: Female

DRUGS (1)
  1. DESOLETT [Suspect]
     Indication: ORAL CONTRACEPTION
     Dosage: DF ORAL
     Route: 048
     Dates: start: 20020628, end: 20021001

REACTIONS (6)
  - DEPRESSION [None]
  - DRUG ABUSER [None]
  - EMOTIONAL DISTRESS [None]
  - PAIN [None]
  - PULMONARY EMBOLISM [None]
  - VENOUS THROMBOSIS LIMB [None]
